FAERS Safety Report 5079625-9 (Version None)
Quarter: 2006Q3

REPORT INFORMATION
  Report Type: 
  Country: None (occurrence: None)
  Receive Date: 20060814
  Receipt Date: 20060803
  Transmission Date: 20061208
  Serious: Yes (Hospitalization)
  Sender: FDA-Public Use
  Company Number: CA-BOEHRINGER INGELHEIM PHARMACEUTICALS, INC.-2006-CN-00391CN

PATIENT
  Sex: Male

DRUGS (3)
  1. FLOMAX [Suspect]
     Dates: start: 20060401
  2. XATRAL [Concomitant]
     Indication: MICTURITION URGENCY
  3. CARDURA [Concomitant]

REACTIONS (3)
  - ABDOMINAL DISCOMFORT [None]
  - CORONARY ARTERIAL STENT INSERTION [None]
  - MYOCARDIAL INFARCTION [None]
